FAERS Safety Report 13770429 (Version 1)
Quarter: 2017Q3

REPORT INFORMATION
  Report Type: Spontaneous
  Country: HU (occurrence: HU)
  Receive Date: 20170719
  Receipt Date: 20170719
  Transmission Date: 20171127
  Serious: Yes (Other)
  Sender: FDA-Public Use
  Company Number: HU-B.I. PHARMACEUTICALS,INC./RIDGEFIELD-2017-BI-034166

PATIENT
  Age: 25 Year
  Sex: Male

DRUGS (6)
  1. PEMETREXED. [Concomitant]
     Active Substance: PEMETREXED
     Indication: LUNG NEOPLASM
     Route: 065
  2. CISPLATIN. [Concomitant]
     Active Substance: CISPLATIN
     Indication: LUNG NEOPLASM
     Route: 065
  3. GILOTRIF [Suspect]
     Active Substance: AFATINIB
     Indication: LUNG NEOPLASM
     Route: 065
     Dates: start: 201410
  4. NIVOLUMAB [Concomitant]
     Active Substance: NIVOLUMAB
     Indication: LUNG NEOPLASM
     Route: 065
  5. BISPHOSPHONAT [Concomitant]
     Indication: LUNG NEOPLASM
     Route: 065
  6. GEFITINIB. [Concomitant]
     Active Substance: GEFITINIB
     Indication: LUNG NEOPLASM
     Route: 065

REACTIONS (5)
  - Multiple drug therapy [Unknown]
  - Multi-organ disorder [Unknown]
  - Neoplasm progression [Not Recovered/Not Resolved]
  - Metastases to meninges [Not Recovered/Not Resolved]
  - Metastases to bone [Not Recovered/Not Resolved]

NARRATIVE: CASE EVENT DATE: 201503
